FAERS Safety Report 6609380-X (Version None)
Quarter: 2010Q1

REPORT INFORMATION
  Report Type: 
  Country: None (occurrence: None)
  Receive Date: 20100302
  Receipt Date: 20100225
  Transmission Date: 20100710
  Serious: Yes (Hospitalization)
  Sender: FDA-Public Use
  Company Number: IT-TEVA-220899ISR

PATIENT
  Sex: Female

DRUGS (3)
  1. FLUDARABINE [Suspect]
     Indication: MANTLE CELL LYMPHOMA STAGE IV
     Route: 042
     Dates: start: 20090317, end: 20090409
  2. CYCLOPHOSPHAMIDE [Suspect]
     Route: 042
     Dates: start: 20090317, end: 20090409
  3. BORTEZOMIB [Suspect]
     Indication: MANTLE CELL LYMPHOMA STAGE IV
     Dates: start: 20091001, end: 20091001

REACTIONS (3)
  - SPLENIC INFARCTION [None]
  - SPLENOMEGALY [None]
  - VASCULITIS [None]
